FAERS Safety Report 9929915 (Version 4)
Quarter: 2014Q1

REPORT INFORMATION
  Report Type: Spontaneous
  Country: BR (occurrence: BR)
  Receive Date: 20140227
  Receipt Date: 20140326
  Transmission Date: 20141002
  Serious: Yes (Disabling, Other)
  Sender: FDA-Public Use
  Company Number: BR-ELI_LILLY_AND_COMPANY-BR201304004443

PATIENT
  Age: 78 Year
  Sex: Female

DRUGS (12)
  1. FORTEO [Suspect]
     Indication: PRODUCT USED FOR UNKNOWN INDICATION
     Dosage: UNK, UNKNOWN
     Route: 065
     Dates: start: 20121220
  2. EVISTA [Suspect]
     Indication: BONE DENSITY DECREASED
     Dosage: UNK, UNKNOWN
     Route: 065
     Dates: start: 2002, end: 20121220
  3. METHOTREXATE [Suspect]
     Indication: HERPES VIRUS INFECTION
  4. SERTRALINA [Concomitant]
     Indication: PRODUCT USED FOR UNKNOWN INDICATION
     Dosage: UNK, UNKNOWN
     Route: 065
  5. VITAMINA D [Concomitant]
     Indication: PRODUCT USED FOR UNKNOWN INDICATION
     Dosage: UNK, UNKNOWN
     Route: 065
  6. VITAMINA D [Concomitant]
     Dosage: 2000 IU, QD
     Route: 065
     Dates: start: 201309
  7. CALCIUM [Concomitant]
     Indication: PRODUCT USED FOR UNKNOWN INDICATION
     Dosage: UNK, UNKNOWN
     Route: 065
  8. PARACETAMOL [Concomitant]
     Indication: RHEUMATOID ARTHRITIS
     Dosage: UNK, UNKNOWN
     Route: 065
  9. OSCAL D [Concomitant]
     Dosage: 2 DF, QD
  10. OSCAL D [Concomitant]
     Dosage: 1 DF, QD
  11. ALENDRONATE [Concomitant]
  12. PROTOS [Concomitant]

REACTIONS (11)
  - Device dislocation [Recovered/Resolved]
  - Bone formation decreased [Recovered/Resolved]
  - Rheumatoid arthritis [Not Recovered/Not Resolved]
  - Femur fracture [Not Recovered/Not Resolved]
  - Drug intolerance [Unknown]
  - Nausea [Recovering/Resolving]
  - Herpes virus infection [Not Recovered/Not Resolved]
  - Vitamin D abnormal [Unknown]
  - Vitamin D decreased [Unknown]
  - Pseudarthrosis [Unknown]
  - Emotional disorder [Unknown]
